FAERS Safety Report 23700235 (Version 1)
Quarter: 2024Q2

REPORT INFORMATION
  Report Type: Spontaneous
  Country: US (occurrence: US)
  Receive Date: 20240403
  Receipt Date: 20240403
  Transmission Date: 20240716
  Serious: Yes (Other)
  Sender: FDA-Public Use
  Company Number: US-JAZZ PHARMACEUTICALS-2024-US-005357

PATIENT
  Sex: Female

DRUGS (1)
  1. XYWAV [Suspect]
     Active Substance: CALCIUM OXYBATE\MAGNESIUM OXYBATE\POTASSIUM OXYBATE\SODIUM OXYBATE
     Indication: Product used for unknown indication
     Dosage: UNK

REACTIONS (7)
  - Foetal heart rate deceleration abnormality [Recovering/Resolving]
  - Foetal growth restriction [Unknown]
  - Umbilical cord around neck [Recovered/Resolved]
  - Umbilical cord short [Unknown]
  - Small for dates baby [Unknown]
  - Tethered oral tissue [Unknown]
  - Exposure via breast milk [Unknown]
